FAERS Safety Report 9161930 (Version 1)
Quarter: 2013Q1

REPORT INFORMATION
  Report Type: Spontaneous
  Country: US (occurrence: None)
  Receive Date: 20130222
  Receipt Date: 20130222
  Transmission Date: 20140127
  Serious: Yes (Other)
  Sender: FDA-Public Use
  Company Number: 2013-0733

PATIENT
  Age: 42 Year
  Sex: Male

DRUGS (2)
  1. SOMATULINE DEPOT [Suspect]
     Indication: ACROMEGALY
     Dosage: 90 MG (90 MG, 1 IN 28
     Dates: start: 20130124
  2. METFORMIN (METFORMIN) [Concomitant]

REACTIONS (5)
  - Blood glucose increased [None]
  - Dry skin [None]
  - Injection site pain [None]
  - Rash erythematous [None]
  - Rash pruritic [None]
